FAERS Safety Report 20863103 (Version 3)
Quarter: 2022Q3

REPORT INFORMATION
  Report Type: Report from Study
  Country: US (occurrence: US)
  Receive Date: 20220523
  Receipt Date: 20220704
  Transmission Date: 20221026
  Serious: No
  Sender: FDA-Public Use
  Company Number: US-NOVARTISTESTPH-NVSC2022US117259

PATIENT
  Sex: Male

DRUGS (1)
  1. ENTRESTO [Suspect]
     Active Substance: SACUBITRIL\VALSARTAN
     Indication: Product used for unknown indication
     Dosage: 1 DOSAGE FORM (24/26 MG), BID
     Route: 048
     Dates: start: 202203

REACTIONS (8)
  - Feeling abnormal [Unknown]
  - Fluid retention [Recovering/Resolving]
  - Swelling [Unknown]
  - Dyspnoea [Recovering/Resolving]
  - Blood sodium decreased [Recovering/Resolving]
  - Ejection fraction abnormal [Unknown]
  - Gait inability [Not Recovered/Not Resolved]
  - Oxygen saturation decreased [Not Recovered/Not Resolved]
